FAERS Safety Report 7898175-5 (Version None)
Quarter: 2011Q4

REPORT INFORMATION
  Report Type: 
  Country: None (occurrence: None)
  Receive Date: 20111107
  Receipt Date: 20111027
  Transmission Date: 20120403
  Serious: Yes (Hospitalization)
  Sender: FDA-Public Use
  Company Number: US-BAYER-2011-107109

PATIENT
  Age: 63 Year
  Sex: Male
  Weight: 76 kg

DRUGS (2)
  1. ASPIRIN [Suspect]
     Dosage: UNK
     Route: 048
  2. SULFASALAZINE [Suspect]
     Indication: ARTHRITIS
     Dosage: 500 MG BID
     Dates: start: 20110901

REACTIONS (3)
  - HYPERSENSITIVITY [None]
  - HYPOTENSION [None]
  - VASODILATATION [None]
